FAERS Safety Report 10660094 (Version 1)
Quarter: 2014Q4

REPORT INFORMATION
  Report Type: Spontaneous
  Country: US (occurrence: US)
  Receive Date: 20141217
  Receipt Date: 20141217
  Transmission Date: 20150529
  Serious: No
  Sender: FDA-Public Use
  Company Number: US-ASTRAZENECA-2014SE94719

PATIENT
  Age: 25723 Day
  Sex: Female
  Weight: 93.4 kg

DRUGS (6)
  1. CRESTOR [Suspect]
     Active Substance: ROSUVASTATIN CALCIUM
     Route: 048
  2. BETA BLOCKER [Concomitant]
     Active Substance: UNSPECIFIED INGREDIENT
     Route: 065
  3. ASPIRIN. [Concomitant]
     Active Substance: ASPIRIN
  4. BRILINTA [Suspect]
     Active Substance: TICAGRELOR
     Indication: THROMBOSIS PROPHYLAXIS
     Route: 048
     Dates: start: 20141114, end: 20141204
  5. METOPROLOL [Suspect]
     Active Substance: METOPROLOL
     Route: 065
  6. BRILINTA [Suspect]
     Active Substance: TICAGRELOR
     Indication: THROMBOSIS PROPHYLAXIS
     Route: 048
     Dates: start: 20141114, end: 20141114

REACTIONS (1)
  - Dyspnoea [Unknown]

NARRATIVE: CASE EVENT DATE: 20141114
